FAERS Safety Report 7484835-7 (Version None)
Quarter: 2011Q2

REPORT INFORMATION
  Report Type: 
  Country: None (occurrence: None)
  Receive Date: 20110517
  Receipt Date: 20100923
  Transmission Date: 20111010
  Serious: Yes (Other)
  Sender: FDA-Public Use
  Company Number: US-BAYER-201018608NA

PATIENT
  Age: 25 Year
  Sex: Female
  Weight: 131.52 kg

DRUGS (18)
  1. YASMIN [Suspect]
     Indication: ORAL CONTRACEPTION
     Route: 048
     Dates: start: 20070831, end: 20071220
  2. BUTALBITAL ACETAMINOPHEN AND CAFFEINE [Concomitant]
     Dosage: BUT/APA/CAFF 50/325/40
     Dates: start: 20070419
  3. GLUCOPHAGE [Concomitant]
  4. LEVOTHROID [Concomitant]
     Dates: start: 20060714
  5. ETODOLAC [Concomitant]
  6. KLONOPIN [Concomitant]
  7. LEVOTHYROXINE SODIUM [Concomitant]
     Dates: start: 20061110
  8. LISINOPRIL [Concomitant]
  9. MEPRAZOL [Concomitant]
  10. ISOMETHEPTENE/DICHLORALPHENAZONE/APAP [Concomitant]
  11. MOTRIN [Concomitant]
  12. ULTRAM [Concomitant]
     Indication: COSTOCHONDRITIS
  13. YAZ [Suspect]
     Indication: ORAL CONTRACEPTION
     Route: 048
     Dates: start: 20070607, end: 20070829
  14. HYDROCODONE BITARTRATE [Concomitant]
  15. LORA TAB [Concomitant]
  16. TIZANIDINE HCL [Concomitant]
     Dates: start: 20070607
  17. CELEXA [Concomitant]
  18. NORVASC [Concomitant]

REACTIONS (4)
  - CHOLECYSTITIS CHRONIC [None]
  - ADHESION [None]
  - ABDOMINAL PAIN UPPER [None]
  - CHOLELITHIASIS [None]
